FAERS Safety Report 21892693 (Version 1)
Quarter: 2023Q1

REPORT INFORMATION
  Report Type: Spontaneous
  Country: US (occurrence: US)
  Receive Date: 20230120
  Receipt Date: 20230120
  Transmission Date: 20230418
  Serious: No
  Sender: FDA-Public Use
  Company Number: US-MYLANLABS-2023M1006049

PATIENT
  Sex: Male
  Weight: 97.07 kg

DRUGS (1)
  1. SEMGLEE (INSULIN GLARGINE-YFGN) [Suspect]
     Active Substance: INSULIN GLARGINE-YFGN
     Indication: Type 2 diabetes mellitus
     Dosage: 18 INTERNATIONAL UNIT
     Route: 058

REACTIONS (4)
  - Weight increased [Unknown]
  - Device breakage [Unknown]
  - Device issue [Unknown]
  - Product dose omission issue [Unknown]
